FAERS Safety Report 9326257 (Version 2)
Quarter: 2013Q2

REPORT INFORMATION
  Report Type: Spontaneous
  Country: CN (occurrence: CN)
  Receive Date: 20130604
  Receipt Date: 20130606
  Transmission Date: 20140414
  Serious: Yes (Other)
  Sender: FDA-Public Use
  Company Number: CN-PFIZER INC-2013166982

PATIENT
  Age: 46 Year
  Sex: Male

DRUGS (1)
  1. MORPHINE SULFATE [Suspect]
     Indication: ARTHRALGIA
     Dosage: 30 MG, SINGLE
     Route: 048
     Dates: start: 20120919, end: 20120919

REACTIONS (2)
  - Agitation [Recovered/Resolved]
  - Speech disorder [Recovered/Resolved]
